FAERS Safety Report 7959957-4 (Version None)
Quarter: 2011Q4

REPORT INFORMATION
  Report Type: 
  Country: None (occurrence: None)
  Receive Date: 20111206
  Receipt Date: 20111202
  Transmission Date: 20120403
  Serious: Yes (Hospitalization)
  Sender: FDA-Public Use
  Company Number: US-ROXANE LABORATORIES, INC.-2011-RO-01611RO

PATIENT
  Sex: Female
  Weight: 162 kg

DRUGS (6)
  1. METFORMIN HCL [Concomitant]
     Indication: DIABETES MELLITUS
     Dosage: 2000 MG
  2. AMPLODIPINE BESYLATE [Concomitant]
     Indication: HYPERTENSION
     Dosage: 2.5 MG
  3. FLUOXETINE [Concomitant]
     Indication: ANXIETY
     Dosage: 20 MG
  4. HCTZ  WITH LISINOPRIL [Concomitant]
     Indication: HYPERTENSION
  5. PRAVASTATIN SODIUM [Concomitant]
     Dosage: 40 MG
  6. NAPROXEN [Suspect]
     Indication: RHEUMATOID ARTHRITIS
     Dosage: 750 MG
     Dates: start: 20101101, end: 20111022

REACTIONS (6)
  - FAECES DISCOLOURED [None]
  - DEHYDRATION [None]
  - DIARRHOEA [None]
  - GASTRIC ULCER HAEMORRHAGE [None]
  - HAEMATOCHEZIA [None]
  - DIZZINESS [None]
